FAERS Safety Report 7307635-7 (Version None)
Quarter: 2011Q1

REPORT INFORMATION
  Report Type: 
  Country: None (occurrence: None)
  Receive Date: 20110223
  Receipt Date: 20110223
  Transmission Date: 20110831
  Serious: Yes (Hospitalization)
  Sender: FDA-Public Use
  Company Number: None

PATIENT
  Age: 61 Year
  Sex: Female
  Weight: 67.1324 kg

DRUGS (2)
  1. ALCOHOL PREP PAD 70% TRIAD [Suspect]
     Indication: THERAPEUTIC SKIN CARE TOPICAL
     Dates: start: 20110123, end: 20110123
  2. ALCOHOL PREP PAD 70% TRIAD [Suspect]
     Indication: THERAPEUTIC SKIN CARE TOPICAL
     Dates: start: 20110210, end: 20110210

REACTIONS (2)
  - CELLULITIS [None]
  - PRODUCT QUALITY ISSUE [None]
